FAERS Safety Report 8017194-1 (Version None)
Quarter: 2012Q1

REPORT INFORMATION
  Report Type: 
  Country: None (occurrence: None)
  Receive Date: 20120102
  Receipt Date: 20111228
  Transmission Date: 20120608
  Serious: Yes (Hospitalization)
  Sender: FDA-Public Use
  Company Number: PHHO2011US019303

PATIENT
  Age: 55 Year
  Sex: Female

DRUGS (20)
  1. ENOXAPARIN SODIUM [Concomitant]
     Dosage: UNK
     Dates: start: 20100730
  2. PALONOSETRON HYDROCHLORIDE [Concomitant]
     Dosage: UNK
     Dates: start: 20111020, end: 20111020
  3. DIPHENHYDRAMINE HCL [Concomitant]
     Dosage: UNK
     Dates: start: 20111103, end: 20111103
  4. DEXAMETHASONE [Concomitant]
     Dosage: UNK
     Dates: start: 20111103, end: 20111103
  5. MAGNESIUM SULFATE [Concomitant]
     Dosage: UNK
     Dates: start: 20110713, end: 20110713
  6. RANITIDINE [Concomitant]
     Dosage: UNK
     Dates: start: 20111103, end: 20111103
  7. ACETAMINOPHEN [Concomitant]
     Dosage: UNK
     Dates: start: 20110314
  8. LORAZEPAM [Concomitant]
     Dosage: UNK
     Dates: start: 20100902
  9. PANTOPRAZOLE [Concomitant]
     Dosage: UNK
     Dates: start: 20100813
  10. CARBOPLATIN [Concomitant]
     Indication: LUNG NEOPLASM MALIGNANT
     Dosage: UNK
     Route: 042
     Dates: start: 20110513
  11. TAXOL [Concomitant]
     Indication: LUNG NEOPLASM MALIGNANT
     Dosage: UNK
     Route: 042
     Dates: start: 20110513
  12. DOCUSATE SODIUM [Concomitant]
     Dosage: UNK
     Dates: start: 20100730
  13. OXYCODONE HCL [Concomitant]
     Dosage: UNK
     Dates: start: 20110523
  14. FENTANYL [Concomitant]
     Dosage: UNK
     Dates: start: 20110523
  15. FOLIC ACID [Concomitant]
     Dosage: UNK
     Dates: start: 20101206
  16. BKM120 [Suspect]
     Indication: LUNG NEOPLASM MALIGNANT
     Dosage: UNK
     Route: 048
     Dates: start: 20110513, end: 20111114
  17. FLU-IMUNE [Concomitant]
     Dosage: UNK
     Dates: start: 20111027, end: 20111027
  18. LEVOTHYROXINE SODIUM [Concomitant]
     Dosage: UNK
     Dates: start: 20100528
  19. SENNA [Concomitant]
     Dosage: UNK
     Dates: start: 20110730
  20. SERTRALINE HYDROCHLORIDE [Concomitant]
     Dosage: UNK
     Dates: start: 20111025

REACTIONS (1)
  - BACK PAIN [None]
